FAERS Safety Report 4457486-6 (Version None)
Quarter: 2004Q3

REPORT INFORMATION
  Report Type: 
  Country: None (occurrence: None)
  Receive Date: 20040921
  Receipt Date: 20040913
  Transmission Date: 20050211
  Serious: Yes (Other)
  Sender: FDA-Public Use
  Company Number: A0519334A

PATIENT
  Age: 65 Year
  Sex: Female
  Weight: 83.9154 kg

DRUGS (5)
  1. BUPROPION HYDROCHLORIDE [Suspect]
     Indication: DEPRESSION
     Dosage: 150 MG/ PER DAY/ ORAL
     Route: 048
     Dates: start: 20040615, end: 20040616
  2. PAROXETINE HYDROCHLORIDE [Concomitant]
  3. TOPIRMATE [Concomitant]
  4. RAMIPRIL [Concomitant]
  5. SIMVASTATIN [Concomitant]

REACTIONS (6)
  - CONDITION AGGRAVATED [None]
  - DEPRESSION [None]
  - MUSCULAR WEAKNESS [None]
  - MYALGIA [None]
  - PHARMACEUTICAL PRODUCT COMPLAINT [None]
  - SUICIDAL IDEATION [None]
